FAERS Safety Report 13942811 (Version 2)
Quarter: 2017Q3

REPORT INFORMATION
  Report Type: Spontaneous
  Country: IE (occurrence: IE)
  Receive Date: 20170906
  Receipt Date: 20170919
  Transmission Date: 20171127
  Serious: Yes (Other)
  Sender: FDA-Public Use
  Company Number: IE-MYLANLABS-2017M1055062

PATIENT
  Age: 6 Decade
  Sex: Male

DRUGS (3)
  1. PREDNISOLONE. [Suspect]
     Active Substance: PREDNISOLONE
     Indication: GRAFT VERSUS HOST DISEASE
     Dosage: 20 MG, QD
     Route: 065
  2. OLANZAPINE. [Suspect]
     Active Substance: OLANZAPINE
     Indication: MANIA
     Route: 065
  3. HALOPERIDOL. [Concomitant]
     Active Substance: HALOPERIDOL
     Indication: MANIA
     Route: 065

REACTIONS (6)
  - Akathisia [Recovering/Resolving]
  - Mania [Unknown]
  - Parkinsonian gait [Recovering/Resolving]
  - Dystonia [Recovered/Resolved]
  - Depression [Unknown]
  - Muscle rigidity [Recovering/Resolving]
